FAERS Safety Report 10084152 (Version 1)
Quarter: 2014Q2

REPORT INFORMATION
  Report Type: Spontaneous
  Country: IT (occurrence: IT)
  Receive Date: 20140417
  Receipt Date: 20140417
  Transmission Date: 20141212
  Serious: Yes (Other)
  Sender: FDA-Public Use
  Company Number: IT-ACTAVIS-2013-25763

PATIENT
  Age: 52 Year
  Sex: Female

DRUGS (7)
  1. QUETIAPINE (UNKNOWN) [Suspect]
     Indication: BORDERLINE PERSONALITY DISORDER
     Dosage: 150 MG, DAILY
     Route: 048
     Dates: start: 20131109, end: 20131110
  2. QUETIAPINE (UNKNOWN) [Suspect]
     Dosage: 100 MG, DAILY
     Route: 048
     Dates: start: 20131025, end: 20131108
  3. QUETIAPINE (UNKNOWN) [Suspect]
     Dosage: 50 MG, DAILY
     Route: 048
     Dates: start: 20131015, end: 20131024
  4. LITHIUM CARBONATE [Concomitant]
     Indication: PROPHYLAXIS
     Dosage: 300 MG, QAM/QPM
     Route: 048
  5. LACTULOSE [Concomitant]
     Indication: PRODUCT USED FOR UNKNOWN INDICATION
     Dosage: 2 DF, DAILY
     Route: 048
  6. PREGABALIN [Concomitant]
     Indication: ANXIOLYTIC THERAPY
     Dosage: 150 MG, DAILY
     Route: 048
  7. MACROGOL 4000 [Concomitant]
     Indication: CONSTIPATION
     Dosage: 1 DF, DAILY
     Route: 048

REACTIONS (4)
  - Delirium [Recovered/Resolved]
  - Hallucination [Recovered/Resolved]
  - Psychomotor skills impaired [Recovered/Resolved]
  - Confusional state [Recovered/Resolved]
